FAERS Safety Report 5419673-X (Version None)
Quarter: 2007Q3

REPORT INFORMATION
  Report Type: 
  Country: None (occurrence: None)
  Receive Date: 20070718
  Receipt Date: 20060828
  Transmission Date: 20080115
  Serious: Yes (Hospitalization, Other)
  Sender: FDA-Public Use
  Company Number: 2006106893

PATIENT
  Age: 47 Year
  Sex: Female
  Weight: 80.7403 kg

DRUGS (2)
  1. CELEBREX [Suspect]
     Indication: ARTHROPATHY
     Dosage: (1 IN 2 D)
  2. BEXTRA [Suspect]
     Indication: ARTHROPATHY
     Dosage: 20 MG (10 MG,1 IN 2 D)

REACTIONS (3)
  - MENTAL DISORDER [None]
  - MYOCARDIAL INFARCTION [None]
  - ROTATOR CUFF SYNDROME [None]
